FAERS Safety Report 6188847-5 (Version None)
Quarter: 2009Q2

REPORT INFORMATION
  Report Type: 
  Country: None (occurrence: None)
  Receive Date: 20090513
  Receipt Date: 20090403
  Transmission Date: 20091009
  Serious: Yes (Other)
  Sender: FDA-Public Use
  Company Number: US-JNJFOC-20090501285

PATIENT
  Age: 31 Year
  Sex: Male

DRUGS (3)
  1. FENTANYL [Suspect]
     Indication: PROCEDURAL PAIN
     Route: 062
  2. MORPHINE [Concomitant]
     Indication: ANALGESIA
     Route: 042
  3. TEGASEROD [Concomitant]
     Indication: PROCEDURAL PAIN

REACTIONS (2)
  - DELIRIUM [None]
  - OFF LABEL USE [None]
